FAERS Safety Report 9820454 (Version 2)
Quarter: 2013Q4

REPORT INFORMATION
  Report Type: Spontaneous
  Country: US (occurrence: None)
  Receive Date: 20131028
  Receipt Date: 20131028
  Transmission Date: 20140711
  Serious: Yes (Hospitalization)
  Sender: FDA-Public Use
  Company Number: 2013US001672

PATIENT
  Age: 59 Year
  Sex: Male
  Weight: 84 kg

DRUGS (19)
  1. ICLUSIG [Suspect]
     Indication: CHRONIC MYELOID LEUKAEMIA
     Route: 048
     Dates: start: 20130502
  2. NITROSTAT (GLYCERYL TRINITRATE) [Concomitant]
  3. K-DUR (POTASSIUM CHLORIDE) [Concomitant]
  4. KLOR-CON (POTASSIUM CHLORIDE) [Concomitant]
  5. LASIX (FUROSEMIDE) [Concomitant]
  6. PRINIVIL (LISINOPRIL DIHYDRATE) [Concomitant]
  7. ZESTRIL (LISINOPRIL) [Concomitant]
  8. COREG (CARVEDILOL) [Concomitant]
  9. ZANTAC (RANITIDINE HYDROCHLORIDE) [Concomitant]
  10. ZOCOR (SIMVASTATIN) [Concomitant]
  11. PERCOCET (OXYCODONE HYDROCHLORIDE, PARACETAMOL) [Concomitant]
  12. SYMBICORT (BUDESONIDE, FORMOTEROL FUMARATE) [Concomitant]
  13. CELEXA (CITALOPRAM HYDROBROMIDE) [Concomitant]
  14. PLAVIX (CLOPIDOGREL BISULFATE) [Concomitant]
  15. ECOTRIN (ACETYLSALICYLIC ACID) [Concomitant]
  16. NAPROSYN (NAPROXEN SODIUM) [Concomitant]
  17. COMPAZINE (PROCHLORPERAZINE EDISYLATE) [Concomitant]
  18. ALDACTONE (SPIRONOLACTONE) [Concomitant]
  19. PROVENTIL (SALBUTAMOL) [Concomitant]

REACTIONS (1)
  - Pleural effusion [None]
